FAERS Safety Report 7892119-8 (Version None)
Quarter: 2011Q4

REPORT INFORMATION
  Report Type: 
  Country: None (occurrence: None)
  Receive Date: 20111103
  Receipt Date: 20110815
  Transmission Date: 20120403
  Serious: No
  Sender: FDA-Public Use
  Company Number: US-AMGEN-USASP2011041421

PATIENT
  Age: 39 Year
  Sex: Female
  Weight: 52 kg

DRUGS (2)
  1. ENBREL [Suspect]
     Indication: PRODUCT USED FOR UNKNOWN INDICATION
     Dosage: 50 MG, QWK
     Route: 058
  2. MULTIPLE VITAMINS [Concomitant]
     Dosage: UNK

REACTIONS (2)
  - GENERAL SYMPTOM [None]
  - NASOPHARYNGITIS [None]
